FAERS Safety Report 25811108 (Version 1)
Quarter: 2025Q3

REPORT INFORMATION
  Report Type: Spontaneous
  Country: US (occurrence: US)
  Receive Date: 20250917
  Receipt Date: 20250917
  Transmission Date: 20251020
  Serious: No
  Sender: SUNOVION
  Company Number: US-SMPA-2025SPA011529

PATIENT
  Age: 73 Year
  Sex: Female
  Weight: 94.331 kg

DRUGS (20)
  1. GEMTESA [Suspect]
     Active Substance: VIBEGRON
     Indication: Hypertonic bladder
     Route: 048
     Dates: start: 20250829, end: 20250903
  2. GEMTESA [Suspect]
     Active Substance: VIBEGRON
     Indication: Micturition urgency
  3. GEMTESA [Suspect]
     Active Substance: VIBEGRON
     Indication: Incontinence
  4. VESICARE [Concomitant]
     Active Substance: SOLIFENACIN SUCCINATE
  5. ATENOLOL [Concomitant]
     Active Substance: ATENOLOL
     Indication: Blood pressure abnormal
     Dosage: 25 MG, QD
  6. ATENOLOL [Concomitant]
     Active Substance: ATENOLOL
     Indication: Heart rate irregular
  7. LANSOPRAZOLE [Concomitant]
     Active Substance: LANSOPRAZOLE
     Indication: Gastrooesophageal reflux disease
     Dosage: 30 MG TWICE A DAY WITH BREAKFAST AND BEFORE DINNER
  8. LASIX [Concomitant]
     Active Substance: FUROSEMIDE
     Indication: Blood pressure abnormal
  9. LASIX [Concomitant]
     Active Substance: FUROSEMIDE
     Indication: Fluid retention
  10. SPIRONOLACTONE [Concomitant]
     Active Substance: SPIRONOLACTONE
     Indication: Blood pressure abnormal
     Dosage: 100 MG TAKEN IN THE MORNING
  11. DIOVAN [Concomitant]
     Active Substance: VALSARTAN
     Indication: Blood pressure abnormal
     Dosage: 320 MG TAKEN IN THE MORNING
  12. ASPIRIN [Concomitant]
     Active Substance: ASPIRIN
     Indication: Thrombosis
     Dosage: 80 MG AT BREAKFAST
  13. TYLENOL ARTHRITIS PAIN [Concomitant]
     Active Substance: ACETAMINOPHEN
     Indication: Arthritis
     Dosage: TWO OF THE 650 MG PILLS (1300 MG TOTAL) EVERY 8 HOURS
  14. NORVASC [Concomitant]
     Active Substance: AMLODIPINE BESYLATE
     Indication: Blood pressure abnormal
  15. POTASSIUM CHLORIDE [Concomitant]
     Active Substance: POTASSIUM CHLORIDE
  16. PLAVIX [Concomitant]
     Active Substance: CLOPIDOGREL BISULFATE
     Indication: Arteriosclerosis
  17. METFORMIN [Concomitant]
     Active Substance: METFORMIN HYDROCHLORIDE
     Indication: Diabetes mellitus
     Dosage: 500 MG TWICE A DAY WITH BREAKFAST AND DINNER
  18. NYSTATIN [Concomitant]
     Active Substance: NYSTATIN
     Indication: Hypersensitivity
     Route: 048
  19. ROSUVASTATIN [Concomitant]
     Active Substance: ROSUVASTATIN
     Indication: Blood cholesterol
  20. LEVOTHYROXINE [Concomitant]
     Active Substance: LEVOTHYROXINE
     Indication: Thyroid disorder

REACTIONS (4)
  - Insomnia [Recovered/Resolved]
  - Heart rate increased [Recovered/Resolved]
  - Faeces soft [Recovered/Resolved]
  - Nausea [Recovered/Resolved]

NARRATIVE: CASE EVENT DATE: 20250829
